FAERS Safety Report 13762990 (Version 5)
Quarter: 2018Q1

REPORT INFORMATION
  Report Type: Spontaneous
  Country: JP (occurrence: JP)
  Receive Date: 20170718
  Receipt Date: 20180227
  Transmission Date: 20180508
  Serious: Yes (Other)
  Sender: FDA-Public Use
  Company Number: JP-VIIV HEALTHCARE LIMITED-JP2017JPN102513

PATIENT
  Age: 4 Decade
  Sex: Male

DRUGS (7)
  1. MENILET (JAPAN) [Interacting]
     Active Substance: ISOSORBIDE
     Indication: DEAFNESS
  2. ADETPHOS KOWA GRANULE [Interacting]
     Active Substance: ADENOSINE TRIPHOSPHATE DISODIUM
     Indication: DIZZINESS
     Dosage: UNK
     Route: 048
  3. ABACAVIRSULPHATE+DOLUTEGRAVIR+LAMIVUDINE [Suspect]
     Active Substance: ABACAVIR SULFATE\DOLUTEGRAVIR SODIUM\LAMIVUDINE
     Indication: HIV INFECTION
     Dosage: 1 DF, QD
     Route: 048
     Dates: start: 20161129
  4. MENILET (JAPAN) [Interacting]
     Active Substance: ISOSORBIDE
     Indication: DIZZINESS
     Dosage: UNK
     Route: 048
  5. ADETPHOS KOWA GRANULE [Interacting]
     Active Substance: ADENOSINE TRIPHOSPHATE DISODIUM
     Indication: DEAFNESS
  6. METHYCOBAL [Interacting]
     Active Substance: METHYLCOBALAMIN
     Indication: DIZZINESS
     Dosage: UNK
     Route: 048
  7. METHYCOBAL [Interacting]
     Active Substance: METHYLCOBALAMIN
     Indication: DEAFNESS

REACTIONS (5)
  - Alopecia [Not Recovered/Not Resolved]
  - Tinnitus [Not Recovered/Not Resolved]
  - Deafness [Not Recovered/Not Resolved]
  - Drug interaction [Unknown]
  - Dizziness [Not Recovered/Not Resolved]

NARRATIVE: CASE EVENT DATE: 20170703
